FAERS Safety Report 25371028 (Version 1)
Quarter: 2025Q2

REPORT INFORMATION
  Report Type: Spontaneous
  Country: US (occurrence: US)
  Receive Date: 20250529
  Receipt Date: 20250529
  Transmission Date: 20250717
  Serious: No
  Sender: SANDOZ
  Company Number: US-SANDOZ-SDZ2025US036079

PATIENT
  Sex: Male

DRUGS (1)
  1. TIMOLOL MALEATE [Suspect]
     Active Substance: TIMOLOL MALEATE
     Indication: Product used for unknown indication
     Dosage: UNK, TWICE A DAY IN BOTH EYES (STRENGTH: 0.5% 10ML)
     Route: 065

REACTIONS (1)
  - Eye irritation [Unknown]
